FAERS Safety Report 8245511-6 (Version None)
Quarter: 2012Q1

REPORT INFORMATION
  Report Type: 
  Country: None (occurrence: None)
  Receive Date: 20120329
  Receipt Date: 20120320
  Transmission Date: 20120608
  Serious: Yes (Hospitalization, Other)
  Sender: FDA-Public Use
  Company Number: US-ASTRAZENECA-2011SE56042

PATIENT
  Age: 63 Year
  Sex: Female

DRUGS (5)
  1. NEXIUM [Suspect]
     Route: 048
  2. METOPROLOL SUCCINATE EXTENDED RELEASE [Concomitant]
     Route: 048
  3. LORATADINE [Concomitant]
  4. LEXAPRO [Concomitant]
  5. ASPIRIN [Concomitant]

REACTIONS (11)
  - URINARY TRACT INFECTION [None]
  - MYOCARDIAL INFARCTION [None]
  - DIARRHOEA [None]
  - MALAISE [None]
  - CORONARY ARTERY DISEASE [None]
  - VOMITING [None]
  - MEMORY IMPAIRMENT [None]
  - DISCOMFORT [None]
  - NAUSEA [None]
  - HIATUS HERNIA [None]
  - DIVERTICULITIS [None]
